FAERS Safety Report 18506001 (Version 1)
Quarter: 2020Q4

REPORT INFORMATION
  Report Type: Spontaneous
  Country: ES (occurrence: ES)
  Receive Date: 20201116
  Receipt Date: 20201116
  Transmission Date: 20210114
  Serious: Yes (Other)
  Sender: FDA-Public Use
  Company Number: GXKR2010ES00807

PATIENT
  Age: 43 Year
  Sex: Female

DRUGS (4)
  1. CIPROFLOXACIN. [Suspect]
     Active Substance: CIPROFLOXACIN
     Indication: PRODUCT USED FOR UNKNOWN INDICATION
     Dosage: UNK
     Route: 065
  2. METAMIZOLE [Concomitant]
     Active Substance: METAMIZOLE
     Indication: DENTAL IMPLANTATION
     Dosage: UNK, PRN
     Route: 065
  3. AMOXICILLIN SODIUM,POTASSIUM CLAVULANATE [Suspect]
     Active Substance: AMOXICILLIN\CLAVULANATE POTASSIUM
     Indication: PROPHYLAXIS
     Dosage: 3 DF, QD, 875/125 MG, TID
     Route: 065
  4. IBUPROFEN. [Concomitant]
     Active Substance: IBUPROFEN
     Indication: DENTAL IMPLANTATION
     Dosage: UNK, PM
     Route: 065

REACTIONS (26)
  - Weight decreased [Recovering/Resolving]
  - Abdominal pain upper [Recovering/Resolving]
  - Faeces pale [Recovering/Resolving]
  - Eosinophilia [Recovering/Resolving]
  - Dysgeusia [Recovering/Resolving]
  - Vaginal discharge [Recovering/Resolving]
  - Vulvovaginal candidiasis [Unknown]
  - Hepatitis cholestatic [Recovered/Resolved]
  - Decreased appetite [Recovering/Resolving]
  - Asthenia [Recovering/Resolving]
  - Pyrexia [Recovering/Resolving]
  - Rash [Recovering/Resolving]
  - Urine abnormality [Recovering/Resolving]
  - Oral candidiasis [Unknown]
  - Leukocytosis [Recovering/Resolving]
  - Vulvovaginal mycotic infection [Recovering/Resolving]
  - Micturition disorder [Recovering/Resolving]
  - Pruritus [Recovering/Resolving]
  - Dry skin [Recovering/Resolving]
  - Candida infection [Recovering/Resolving]
  - Cholestasis [Recovered/Resolved]
  - Jaundice [Recovering/Resolving]
  - Hepatocellular injury [Recovered/Resolved]
  - Hepatomegaly [Recovering/Resolving]
  - Nausea [Recovering/Resolving]
  - Tongue discomfort [Recovering/Resolving]
